FAERS Safety Report 5182782-7 (Version None)
Quarter: 2006Q4

REPORT INFORMATION
  Report Type: 
  Country: None (occurrence: None)
  Receive Date: 20061220
  Receipt Date: 20051114
  Transmission Date: 20070319
  Serious: No
  Sender: FDA-Public Use
  Company Number: US-GLAXOSMITHKLINE-A0582127A

PATIENT
  Age: 50 Year
  Sex: Male

DRUGS (2)
  1. NICODERM CQ [Suspect]
     Indication: SMOKING CESSATION THERAPY
     Dates: start: 20051114
  2. EQUATE NICOTINE GUM 2MG, MINT [Suspect]
     Indication: SMOKING CESSATION THERAPY
     Dates: start: 20051110, end: 20051114

REACTIONS (3)
  - ANOREXIA [None]
  - DIZZINESS [None]
  - STOMACH DISCOMFORT [None]
